FAERS Safety Report 8551643-5 (Version None)
Quarter: 2012Q3

REPORT INFORMATION
  Report Type: 
  Country: None (occurrence: None)
  Receive Date: 20120730
  Receipt Date: 20120725
  Transmission Date: 20120928
  Serious: Yes (Other)
  Sender: FDA-Public Use
  Company Number: AT-BAYER-2012-074720

PATIENT
  Sex: Male

DRUGS (3)
  1. CIPROFLOXACIN HCL [Suspect]
     Indication: URINARY TRACT INFECTION
     Dosage: TOOK 2 - 3 TIMES A DAY
     Route: 048
  2. AUGMENTIN '500' [Suspect]
  3. CIPROFLOXACIN HCL [Suspect]
     Indication: PYREXIA

REACTIONS (2)
  - TONSILLITIS [None]
  - PYREXIA [None]
